FAERS Safety Report 9019499 (Version 1)
Quarter: 2013Q1

REPORT INFORMATION
  Report Type: Spontaneous
  Country: US (occurrence: US)
  Receive Date: 20130118
  Receipt Date: 20130118
  Transmission Date: 20140127
  Serious: No
  Sender: FDA-Public Use
  Company Number: US-BAUSCH-2012BL002148

PATIENT
  Age: 67 Year
  Sex: Female

DRUGS (2)
  1. TOBRAMYCIN OPHTHALMIC SOLUTION USP 0.3% [Suspect]
     Indication: HORDEOLUM
     Route: 047
     Dates: start: 20120320, end: 20120324
  2. TOBRAMYCIN OPHTHALMIC SOLUTION USP 0.3% [Suspect]
     Route: 047
     Dates: start: 20120325

REACTIONS (1)
  - Heart rate increased [Recovered/Resolved]
